FAERS Safety Report 9547494 (Version 1)
Quarter: 2013Q2

REPORT INFORMATION
  Report Type: Spontaneous
  Country: US (occurrence: None)
  Receive Date: 20130606
  Receipt Date: 20130606
  Transmission Date: 20140414
  Serious: No
  Sender: FDA-Public Use
  Company Number: 163-POMAL-13050789

PATIENT
  Age: 73 Year
  Sex: Male

DRUGS (9)
  1. POMALYST (POMALIDOMIDE) (2 MILLIGRAM, CAPSULES) [Suspect]
     Indication: PLASMA CELL MYELOMA
     Dosage: 2 MG, 21 IN 21 D, PO?04/08/2013 - TEMP
     Route: 048
     Dates: start: 20130408
  2. ACTOS (PIOGLITAZONE) [Concomitant]
  3. ACYCLOVIR (ACICLOVIR) (ACICLOVIR) [Concomitant]
  4. AFINITOR (EVEROLIMUS) [Concomitant]
  5. ANDRODERM (TESTOSTEONE) [Concomitant]
  6. ASPIRIN (ACETYLSALICYLIC ACID) [Concomitant]
  7. CYCLOPHOSPHAMIDE (CYCLOPHOSPHAMIDE) [Concomitant]
  8. DEXAMETHASONE (DEXAMETHASONE) [Concomitant]
  9. FEXOFENADINE HCL (FEXOFENADINE) [Concomitant]

REACTIONS (1)
  - Full blood count decreased [None]
